FAERS Safety Report 23560079 (Version 1)
Quarter: 2024Q1

REPORT INFORMATION
  Report Type: Spontaneous
  Country: CN (occurrence: CN)
  Receive Date: 20240223
  Receipt Date: 20240223
  Transmission Date: 20240410
  Serious: Yes (Hospitalization)
  Sender: FDA-Public Use
  Company Number: CN-PFIZER INC-PV202400024879

PATIENT
  Age: 11 Year
  Sex: Male
  Weight: 62 kg

DRUGS (1)
  1. METHOTREXATE SODIUM [Suspect]
     Active Substance: METHOTREXATE SODIUM
     Indication: Acute lymphocytic leukaemia
     Dosage: 7.0G+5% GLUCOSE INJECTION 1.5L, INTRAVENOUS PUMP, LASTED 24 HOURS
     Route: 041
     Dates: start: 20240216, end: 20240217

REACTIONS (6)
  - Vomiting [Recovering/Resolving]
  - Transaminases increased [Recovering/Resolving]
  - Abdominal pain [Recovering/Resolving]
  - Eyelid oedema [Recovering/Resolving]
  - Pallor [Recovering/Resolving]
  - Metabolic disorder [Recovering/Resolving]

NARRATIVE: CASE EVENT DATE: 20240217
